FAERS Safety Report 12203816 (Version 1)
Quarter: 2016Q1

REPORT INFORMATION
  Report Type: Spontaneous
  Country: FR (occurrence: FR)
  Receive Date: 20160323
  Receipt Date: 20160323
  Transmission Date: 20160526
  Serious: Yes (Hospitalization)
  Sender: FDA-Public Use
  Company Number: FR-ASTRAZENECA-2016SE30501

PATIENT
  Age: 85 Year
  Sex: Female

DRUGS (13)
  1. PROCORALAN [Concomitant]
     Active Substance: IVABRADINE
  2. DEPAKINE [Concomitant]
     Active Substance: VALPROATE SODIUM
  3. TANGANIL [Concomitant]
     Active Substance: ACETYLLEUCINE
  4. FUROSEMIDE. [Concomitant]
     Active Substance: FUROSEMIDE
  5. IKOREL [Suspect]
     Active Substance: NICORANDIL
     Indication: ANGINA PECTORIS
     Route: 048
     Dates: start: 2014
  6. NERISONE [Suspect]
     Active Substance: DIFLUCORTOLONE VALERATE
     Route: 062
  7. INEXIUM [Suspect]
     Active Substance: ESOMEPRAZOLE
     Route: 048
     Dates: start: 201506
  8. COVERSYL [Concomitant]
     Active Substance: PERINDOPRIL
  9. LESCOL [Concomitant]
     Active Substance: FLUVASTATIN SODIUM
  10. KARDEGIC [Concomitant]
     Active Substance: ASPIRIN LYSINE
  11. DOLIPRANE [Concomitant]
     Active Substance: ACETAMINOPHEN
  12. KESTIN [Suspect]
     Active Substance: EBASTINE
     Route: 048
     Dates: start: 201512
  13. UVEDOSE [Concomitant]
     Active Substance: CHOLECALCIFEROL

REACTIONS (1)
  - Skin ulcer [Unknown]
